FAERS Safety Report 10183906 (Version 3)
Quarter: 2014Q3

REPORT INFORMATION
  Report Type: Spontaneous
  Country: GB (occurrence: GB)
  Receive Date: 20140520
  Receipt Date: 20140908
  Transmission Date: 20150326
  Serious: Yes (Death)
  Sender: FDA-Public Use
  Company Number: GB-BANPHARM-20142685

PATIENT
  Age: 82 Year
  Sex: Female
  Weight: 59.4 kg

DRUGS (8)
  1. SIMVASTATIN. [Concomitant]
     Active Substance: SIMVASTATIN
  2. AMLODIPINE [Concomitant]
     Active Substance: AMLODIPINE BESYLATE
  3. BENDROFLUMETHIAZIDE [Concomitant]
     Active Substance: BENDROFLUMETHIAZIDE
  4. FLUOXETINE [Concomitant]
     Active Substance: FLUOXETINE\FLUOXETINE HYDROCHLORIDE
  5. IBUPROFEN UNKNOWN PRODUCT [Suspect]
     Active Substance: IBUPROFEN
     Indication: PAIN
     Dosage: 400 MG, TID,
     Route: 048
     Dates: start: 20130307, end: 20140414
  6. CODEINE [Concomitant]
     Active Substance: CODEINE
  7. SALBUTAMOL [Concomitant]
     Active Substance: ALBUTEROL
  8. PREDNISOLONE. [Suspect]
     Active Substance: PREDNISOLONE
     Indication: CHRONIC OBSTRUCTIVE PULMONARY DISEASE
     Dosage: 30 MG, QD
     Dates: start: 20140407, end: 20140414

REACTIONS (9)
  - Catheter site haemorrhage [None]
  - Duodenal ulcer repair [Not Recovered/Not Resolved]
  - Sepsis [Fatal]
  - Hepatic rupture [None]
  - Pleural effusion [None]
  - Vascular pseudoaneurysm [None]
  - Arteriovenous fistula [None]
  - Multi-organ failure [None]
  - Chronic obstructive pulmonary disease [None]

NARRATIVE: CASE EVENT DATE: 20140413
